FAERS Safety Report 13540612 (Version 2)
Quarter: 2017Q2

REPORT INFORMATION
  Report Type: Spontaneous
  Country: US (occurrence: US)
  Receive Date: 20170512
  Receipt Date: 20170629
  Transmission Date: 20170830
  Serious: No
  Sender: FDA-Public Use
  Company Number: US-ASTRAZENECA-2017SE47850

PATIENT
  Sex: Male
  Weight: 118.4 kg

DRUGS (3)
  1. PROAIR HFA [Concomitant]
     Active Substance: ALBUTEROL SULFATE
     Indication: INHALATION THERAPY
     Dosage: 2 PUFFS EVERY 4 TO 6 HOURS AS NEEDED ON MONDAY AND FRIDAY
     Route: 055
     Dates: start: 201704
  2. SYMBICORT [Suspect]
     Active Substance: BUDESONIDE\FORMOTEROL FUMARATE DIHYDRATE
     Indication: DYSPNOEA
     Dosage: 80/4.5MCG TWO PUFFS TWICE A DAY
     Route: 055
  3. COUMADIN [Concomitant]
     Active Substance: WARFARIN SODIUM
     Indication: THROMBOSIS
     Dosage: 7.5 FOR 5 DAYS OF THE WEEK, AND 10, FOR 2 DAYS OF THE WEEK
     Route: 048
     Dates: start: 201611

REACTIONS (10)
  - Off label use [Unknown]
  - Sleep apnoea syndrome [Unknown]
  - Wrong technique in product usage process [Unknown]
  - Eye disorder [Unknown]
  - Respiratory tract congestion [Unknown]
  - Product use in unapproved indication [Unknown]
  - Device malfunction [Unknown]
  - Circumstance or information capable of leading to medication error [Unknown]
  - Productive cough [Unknown]
  - Dyspnoea [Unknown]
